FAERS Safety Report 7383667-8 (Version None)
Quarter: 2011Q1

REPORT INFORMATION
  Report Type: 
  Country: None (occurrence: None)
  Receive Date: 20110330
  Receipt Date: 20110325
  Transmission Date: 20110831
  Serious: No
  Sender: FDA-Public Use
  Company Number: SE-ROCHE-738948

PATIENT
  Sex: Male

DRUGS (1)
  1. CELLCEPT [Suspect]
     Indication: FIBROSIS
     Route: 065
     Dates: end: 20100616

REACTIONS (6)
  - DIARRHOEA [None]
  - BACK PAIN [None]
  - RECTAL ULCER [None]
  - SKIN ULCER [None]
  - PENILE ULCERATION [None]
  - RECTAL DISCHARGE [None]
